FAERS Safety Report 7256489-6 (Version None)
Quarter: 2011Q1

REPORT INFORMATION
  Report Type: 
  Country: None (occurrence: None)
  Receive Date: 20110129
  Receipt Date: 20100803
  Transmission Date: 20110831
  Serious: No
  Sender: FDA-Public Use
  Company Number: US-ABBOTT-10P-163-0662187-00

PATIENT
  Sex: Female

DRUGS (2)
  1. LISTERINE [Concomitant]
     Indication: PRODUCT USED FOR UNKNOWN INDICATION
  2. HUMIRA [Suspect]
     Indication: ANKYLOSING SPONDYLITIS
     Dates: start: 20100201, end: 20100711

REACTIONS (4)
  - PRURITUS [None]
  - HEADACHE [None]
  - URTICARIA [None]
  - PAPULE [None]
